FAERS Safety Report 7332836-1 (Version None)
Quarter: 2011Q1

REPORT INFORMATION
  Report Type: 
  Country: None (occurrence: None)
  Receive Date: 20110304
  Receipt Date: 20110301
  Transmission Date: 20110831
  Serious: Yes (Hospitalization)
  Sender: FDA-Public Use
  Company Number: ES-MERCK-1102ESP00033

PATIENT
  Age: 79 Year
  Sex: Male

DRUGS (2)
  1. PIPERACILLIN SODIUM AND TAZOBACTAM SODIUM [Concomitant]
     Indication: PNEUMONIA
     Route: 042
     Dates: start: 20090414, end: 20090422
  2. INVANZ [Suspect]
     Indication: PNEUMONIA
     Route: 042
     Dates: start: 20090423, end: 20090505

REACTIONS (1)
  - NO THERAPEUTIC RESPONSE [None]
